FAERS Safety Report 8017530-6 (Version None)
Quarter: 2011Q4

REPORT INFORMATION
  Report Type: 
  Country: None (occurrence: None)
  Receive Date: 20111228
  Receipt Date: 20111228
  Transmission Date: 20120403
  Serious: Yes (Other)
  Sender: FDA-Public Use
  Company Number: None

PATIENT
  Age: 50 Year
  Sex: Male
  Weight: 97.5234 kg

DRUGS (2)
  1. RAPAFLO [Suspect]
     Indication: SWELLING
     Dosage: 8 MG ONCE DAILY
     Dates: start: 20111129
  2. RAPAFLO [Suspect]
     Indication: PROSTATIC DISORDER
     Dosage: 8 MG ONCE DAILY
     Dates: start: 20111129

REACTIONS (2)
  - VOMITING [None]
  - NAUSEA [None]
